FAERS Safety Report 6843811-5 (Version None)
Quarter: 2010Q3

REPORT INFORMATION
  Report Type: 
  Country: None (occurrence: None)
  Receive Date: 20100715
  Receipt Date: 20100701
  Transmission Date: 20110219
  Serious: Yes (Other)
  Sender: FDA-Public Use
  Company Number: PHHY2010MT03558

PATIENT
  Age: 69 Year
  Sex: Female

DRUGS (3)
  1. EXFORGE [Suspect]
     Indication: HYPERTENSION
     Dosage: 160/5 MG DAILY
     Route: 048
     Dates: start: 20091101, end: 20091101
  2. EXFORGE [Suspect]
     Dosage: 160/5 MG DAILY
     Route: 048
     Dates: start: 20100301
  3. METFORMIN HCL [Concomitant]

REACTIONS (2)
  - ANGINA PECTORIS [None]
  - CHEST PAIN [None]
